FAERS Safety Report 5941128-4 (Version None)
Quarter: 2008Q4

REPORT INFORMATION
  Report Type: 
  Country: None (occurrence: None)
  Receive Date: 20081104
  Receipt Date: 20081023
  Transmission Date: 20090506
  Serious: Yes (Other)
  Sender: FDA-Public Use
  Company Number: US-PFIZER INC-2008092004

PATIENT
  Sex: Male

DRUGS (3)
  1. INSPRA [Suspect]
     Indication: CARDIAC DISORDER
     Dates: start: 20050101
  2. LYRICA [Suspect]
     Indication: NEUROPATHY PERIPHERAL
     Dates: start: 20080101, end: 20080101
  3. MECLIZINE [Suspect]
     Indication: DIZZINESS

REACTIONS (1)
  - DIZZINESS [None]
